FAERS Safety Report 9456324 (Version 1)
Quarter: 2013Q3

REPORT INFORMATION
  Report Type: Spontaneous
  Country: US (occurrence: US)
  Receive Date: 20130813
  Receipt Date: 20130813
  Transmission Date: 20140515
  Serious: No
  Sender: FDA-Public Use
  Company Number: US-009507513-1308USA005702

PATIENT
  Sex: Female

DRUGS (1)
  1. TINACTIN SPRAY POWDER [Suspect]
     Indication: TINEA PEDIS
     Dosage: UNK, UNKNOWN
     Route: 061

REACTIONS (2)
  - Inappropriate schedule of drug administration [Unknown]
  - Drug ineffective [Unknown]
